FAERS Safety Report 24330246 (Version 4)
Quarter: 2025Q3

REPORT INFORMATION
  Report Type: Report from Study
  Country: US (occurrence: US)
  Receive Date: 20240918
  Receipt Date: 20250816
  Transmission Date: 20251020
  Serious: Yes (Hospitalization, Other)
  Sender: TAKEDA
  Company Number: US-TAKEDA-2024TUS048235

PATIENT
  Age: 75 Year
  Sex: Male

DRUGS (11)
  1. TEDUGLUTIDE [Suspect]
     Active Substance: TEDUGLUTIDE
     Indication: Short-bowel syndrome
     Dosage: 3.72 MILLIGRAM, QD
     Dates: start: 20240426
  2. TEDUGLUTIDE [Suspect]
     Active Substance: TEDUGLUTIDE
     Dosage: 3.72 MILLIGRAM, QD
     Dates: start: 202404
  3. TEDUGLUTIDE [Suspect]
     Active Substance: TEDUGLUTIDE
     Dosage: 3.72 MILLIGRAM, QD
     Dates: start: 202409
  4. TEDUGLUTIDE [Suspect]
     Active Substance: TEDUGLUTIDE
  5. MAGNESIUM [Concomitant]
     Active Substance: MAGNESIUM
  6. CHOLECALCIFEROL [Concomitant]
     Active Substance: CHOLECALCIFEROL
  7. COLESTIPOL [Concomitant]
     Active Substance: COLESTIPOL
  8. LOPERAMIDE [Concomitant]
     Active Substance: LOPERAMIDE
  9. AZATHIOPRINE [Concomitant]
     Active Substance: AZATHIOPRINE
  10. PROTONIX [Concomitant]
     Active Substance: PANTOPRAZOLE SODIUM
  11. STELARA [Concomitant]
     Active Substance: USTEKINUMAB

REACTIONS (9)
  - Vascular device infection [Unknown]
  - Product use issue [Unknown]
  - Diarrhoea [Unknown]
  - Weight decreased [Unknown]
  - Frequent bowel movements [Unknown]
  - Product packaging issue [Unknown]
  - Device difficult to use [Unknown]
  - Flatulence [Unknown]
  - Abdominal distension [Unknown]

NARRATIVE: CASE EVENT DATE: 20240429
